FAERS Safety Report 20374900 (Version 1)
Quarter: 2022Q1

REPORT INFORMATION
  Report Type: Spontaneous
  Country: CA (occurrence: CA)
  Receive Date: 20220125
  Receipt Date: 20220125
  Transmission Date: 20220423
  Serious: Yes (Other)
  Sender: FDA-Public Use
  Company Number: CA-TEVA-2022-CA-2000149

PATIENT
  Age: 86 Year
  Sex: Male

DRUGS (2)
  1. CELECOXIB [Suspect]
     Active Substance: CELECOXIB
     Dosage: 900 MILLIGRAM DAILY;
     Route: 065
  2. NAPROXEN [Suspect]
     Active Substance: NAPROXEN
     Indication: Abdominal pain
     Dosage: 750 MILLIGRAM DAILY;
     Route: 065

REACTIONS (3)
  - Haemoglobin decreased [Unknown]
  - Melaena [Unknown]
  - Rectal haemorrhage [Unknown]
